FAERS Safety Report 4721236-6 (Version None)
Quarter: 2005Q3

REPORT INFORMATION
  Report Type: 
  Country: None (occurrence: None)
  Receive Date: 20050722
  Receipt Date: 20050715
  Transmission Date: 20060218
  Serious: Yes (Hospitalization)
  Sender: FDA-Public Use
  Company Number: US-JNJFOC-20050703332

PATIENT
  Age: 71 Year
  Sex: Male

DRUGS (4)
  1. REMICADE [Suspect]
     Route: 042
  2. REMICADE [Suspect]
     Indication: CROHN'S DISEASE
     Route: 042
  3. ASACOL [Concomitant]
  4. IMURAN [Concomitant]

REACTIONS (2)
  - ACID FAST BACILLI INFECTION [None]
  - PNEUMONIA [None]
